FAERS Safety Report 24429902 (Version 1)
Quarter: 2024Q4

REPORT INFORMATION
  Report Type: Other
  Country: JP (occurrence: JP)
  Receive Date: 20241012
  Receipt Date: 20241012
  Transmission Date: 20250115
  Serious: Yes (Death, Other)
  Sender: ANI
  Company Number: JP-ANIPHARMA-012501

PATIENT
  Age: 67 Year
  Sex: Female

DRUGS (4)
  1. CYCLOPHOSPHAMIDE [Suspect]
     Active Substance: CYCLOPHOSPHAMIDE
     Indication: Breast cancer
  2. EPIRUBICIN [Concomitant]
     Active Substance: EPIRUBICIN
     Indication: Breast cancer
  3. TRASTUZUMAB [Concomitant]
     Active Substance: TRASTUZUMAB
     Indication: Breast cancer
  4. PERTUZUMAB [Concomitant]
     Active Substance: PERTUZUMAB
     Indication: Breast cancer

REACTIONS (1)
  - Acute myeloid leukaemia [Fatal]
